FAERS Safety Report 8981759 (Version 2)
Quarter: 2013Q1

REPORT INFORMATION
  Report Type: Spontaneous
  Country: IT (occurrence: IT)
  Receive Date: 20121223
  Receipt Date: 20130109
  Transmission Date: 20140127
  Serious: Yes (Death, Other)
  Sender: FDA-Public Use
  Company Number: PHHY2012IT118413

PATIENT
  Sex: Male

DRUGS (3)
  1. ZOMETA [Suspect]
     Indication: PLASMA CELL MYELOMA
     Dosage: 4 MG, UNK
     Route: 042
     Dates: start: 20030601, end: 20050701
  2. AREDIA [Suspect]
     Indication: PLASMA CELL MYELOMA
     Dosage: 90 MG, MONTHLY
     Route: 042
     Dates: start: 20020701, end: 20030501
  3. AREDIA [Suspect]
     Dosage: 60 MG, MONTHLY
     Route: 042
     Dates: start: 20050801, end: 20050901

REACTIONS (2)
  - Plasma cell myeloma [Fatal]
  - Osteonecrosis of jaw [Unknown]
